FAERS Safety Report 9644621 (Version 1)
Quarter: 2013Q4

REPORT INFORMATION
  Report Type: Spontaneous
  Country: US (occurrence: US)
  Receive Date: 20131025
  Receipt Date: 20131025
  Transmission Date: 20140711
  Serious: Yes (Death)
  Sender: FDA-Public Use
  Company Number: US-ROCHE-1294012

PATIENT
  Sex: Female

DRUGS (5)
  1. XELODA [Suspect]
     Indication: PRODUCT USED FOR UNKNOWN INDICATION
     Dosage: 4 TABS MORNING, 3 EVENING FOR 7 DAYS, 7 DAYS OFF
     Route: 065
     Dates: start: 20130223
  2. KEPPRA [Concomitant]
  3. CYCLOVIRAN [Concomitant]
  4. PROTONIX (OMEPRAZOLE) [Concomitant]
  5. DECADRON [Concomitant]

REACTIONS (1)
  - Death [Fatal]
